FAERS Safety Report 7449774-6 (Version None)
Quarter: 2011Q2

REPORT INFORMATION
  Report Type: 
  Country: None (occurrence: None)
  Receive Date: 20110502
  Receipt Date: 20110421
  Transmission Date: 20111010
  Serious: Yes (Other)
  Sender: FDA-Public Use
  Company Number: US-RANBAXY-2011US-43964

PATIENT

DRUGS (1)
  1. LISINOPRIL [Suspect]
     Indication: HYPERTENSION
     Dosage: 10 MG, ONCE BEFORE BEDTIME
     Route: 065
     Dates: start: 20110419

REACTIONS (14)
  - SKIN DISCOLOURATION [None]
  - EPISTAXIS [None]
  - EAR DISCOMFORT [None]
  - ABDOMINAL DISTENSION [None]
  - POLLAKIURIA [None]
  - HEADACHE [None]
  - NASAL CONGESTION [None]
  - PHARYNGEAL OEDEMA [None]
  - ABDOMINAL PAIN UPPER [None]
  - DYSPHAGIA [None]
  - RASH [None]
  - BLISTER [None]
  - EYELID OEDEMA [None]
  - EYELID IRRITATION [None]
